FAERS Safety Report 19496175 (Version 3)
Quarter: 2022Q4

REPORT INFORMATION
  Report Type: Spontaneous
  Country: CA (occurrence: CA)
  Receive Date: 20210706
  Receipt Date: 20221015
  Transmission Date: 20230113
  Serious: Yes (Life-Threatening, Hospitalization, Other)
  Sender: FDA-Public Use
  Company Number: None

PATIENT
  Age: 10 Year
  Sex: Male

DRUGS (10)
  1. IBUPROFEN [Interacting]
     Active Substance: IBUPROFEN
     Indication: Fracture pain
     Dosage: 600 MILLIGRAM, EVERY 6 HRS PRN
     Route: 048
     Dates: start: 20180128, end: 20180207
  2. HYDROCORTISONE [Suspect]
     Active Substance: HYDROCORTISONE
     Indication: Diabetes insipidus
     Dosage: 6 MG/M2, EVERY 12 HRS
     Route: 048
  3. HYDROCORTISONE [Suspect]
     Active Substance: HYDROCORTISONE
     Dosage: 15 MILLIGRAM, EVERY 8 HOURS
     Route: 048
  4. HYDROCORTISONE [Suspect]
     Active Substance: HYDROCORTISONE
     Dosage: UNK, DOUBLE MAINTENANCE FOR 2 ADDITIONAL DAYS
     Route: 065
  5. DESMOPRESSIN [Suspect]
     Active Substance: DESMOPRESSIN
     Indication: Diabetes insipidus
     Dosage: 0.6 MG PRN ON DAY 2, DAY 3, DAY 4 AND DAY 5. (STRAT DATE 03 FEB 2018)
     Route: 065
     Dates: start: 201802, end: 20180206
  6. DESMOPRESSIN [Suspect]
     Active Substance: DESMOPRESSIN
     Dosage: 1.6 MILLIGRAM, EVERY 6 HRS, TABLET
     Route: 048
  7. DESMOPRESSIN [Suspect]
     Active Substance: DESMOPRESSIN
     Dosage: 10 MICROGRAM (INTRANASAL)
     Route: 045
     Dates: end: 201802
  8. HYDROMORPHONE [Interacting]
     Active Substance: HYDROMORPHONE
     Indication: Fracture pain
     Dosage: 1 MILLIGRAM, EVERY 4 HRS, EVERY 4 HOURS
     Route: 065
     Dates: start: 20180127, end: 20180202
  9. HYDROMORPHONE [Interacting]
     Active Substance: HYDROMORPHONE
     Dosage: 2 MILLIGRAM, PRN EVERY 4 HOURS
     Route: 065
     Dates: start: 20180127, end: 20180202
  10. SOMATROPIN [Concomitant]
     Active Substance: SOMATROPIN
     Indication: Product used for unknown indication
     Dosage: 1.3 MILLIGRAM PER DAY, GROWTH HORMONE
     Route: 058

REACTIONS (6)
  - Hyponatraemia [Recovered/Resolved]
  - Seizure [Recovered/Resolved]
  - Apnoeic attack [Recovered/Resolved]
  - Unresponsive to stimuli [Recovered/Resolved]
  - Drug interaction [Unknown]
  - Off label use [Unknown]

NARRATIVE: CASE EVENT DATE: 20180202
